FAERS Safety Report 6135093-7 (Version None)
Quarter: 2009Q1

REPORT INFORMATION
  Report Type: 
  Country: None (occurrence: None)
  Receive Date: 20090325
  Receipt Date: 20090308
  Transmission Date: 20090719
  Serious: Yes (Other)
  Sender: FDA-Public Use
  Company Number: 2007S1003582

PATIENT
  Age: 55 Year
  Sex: Female
  Weight: 86.637 kg

DRUGS (10)
  1. PHOSPHOSODA FLAVOR NOT SPECIFIED [Suspect]
     Indication: COLONOSCOPY
     Dosage: PO
     Route: 048
     Dates: start: 20050701, end: 20050701
  2. ADVIL [Concomitant]
  3. NAPROXEN [Concomitant]
  4. FLEXERIL [Concomitant]
  5. ULTRAM [Concomitant]
  6. MULTI-VITAMIN [Concomitant]
  7. HYZAAR [Concomitant]
  8. ZANTAC [Concomitant]
  9. PRAVACHOL [Concomitant]
  10. FLEET ENEMA (SODIUM PHOSPHATE) [Concomitant]

REACTIONS (3)
  - ASTHENIA [None]
  - NEPHROCALCINOSIS [None]
  - RENAL FAILURE CHRONIC [None]
